APPROVED DRUG PRODUCT: MEPERIDINE HYDROCHLORIDE
Active Ingredient: MEPERIDINE HYDROCHLORIDE
Strength: 50MG/ML
Dosage Form/Route: INJECTABLE;INJECTION
Application: A073444 | Product #001
Applicant: WATSON LABORATORIES INC
Approved: Mar 17, 1992 | RLD: No | RS: No | Type: DISCN